FAERS Safety Report 9349147 (Version 1)
Quarter: 2013Q2

REPORT INFORMATION
  Report Type: Spontaneous
  Country: US (occurrence: US)
  Receive Date: 20130614
  Receipt Date: 20130614
  Transmission Date: 20140414
  Serious: Yes (Death)
  Sender: FDA-Public Use
  Company Number: US-ASTRAZENECA-2013SE42466

PATIENT
  Age: 62 Year
  Sex: Female

DRUGS (3)
  1. SEROQUEL [Suspect]
     Route: 048
     Dates: start: 201304
  2. LATUDA [Suspect]
     Indication: SCHIZOAFFECTIVE DISORDER
     Dates: start: 201304
  3. LATUDA [Suspect]
     Indication: BIPOLAR DISORDER
     Dates: start: 201304

REACTIONS (1)
  - Neuroleptic malignant syndrome [Fatal]
